FAERS Safety Report 14731219 (Version 1)
Quarter: 2018Q2

REPORT INFORMATION
  Report Type: Report from Study
  Country: US (occurrence: US)
  Receive Date: 20180406
  Receipt Date: 20180406
  Transmission Date: 20180711
  Serious: Yes (Hospitalization, Other)
  Sender: FDA-Public Use
  Company Number: US-009507513-0909USA04630

PATIENT
  Age: 50 Year
  Sex: Female

DRUGS (20)
  1. OMEPRAZOLE. [Concomitant]
     Active Substance: OMEPRAZOLE
     Dosage: 1 TABLET TWICE DAILY
     Route: 048
  2. ZOLOFT [Concomitant]
     Active Substance: SERTRALINE HYDROCHLORIDE
     Dosage: 100 MG, UNK
  3. RANITIDINE. [Concomitant]
     Active Substance: RANITIDINE
     Dosage: ONE TABLET EVERY 12 HOURS
     Route: 048
  4. HYDROXYZINE HYDROCHLORIDE. [Concomitant]
     Active Substance: HYDROXYZINE HYDROCHLORIDE
     Dosage: 25 MG, ONE TABLET EVERY 4-6 HOURS
     Route: 048
  5. BUPROPION HYDROCHLORIDE. [Concomitant]
     Active Substance: BUPROPION HYDROCHLORIDE
     Dosage: 1 TABLET TWICE DAILY
     Route: 048
  6. XANAX [Concomitant]
     Active Substance: ALPRAZOLAM
  7. FOSAMAX [Concomitant]
     Active Substance: ALENDRONATE SODIUM
     Dosage: 70 MICROGRAM, ONCE WEEKLY
     Route: 048
  8. XARELTO [Concomitant]
     Active Substance: RIVAROXABAN
     Dosage: 20 MG, ONCE DAILY
     Route: 048
  9. ACYCLOVIR. [Concomitant]
     Active Substance: ACYCLOVIR
     Dosage: TWICE DAILY
     Route: 048
  10. FOLIC ACID. [Concomitant]
     Active Substance: FOLIC ACID
     Dosage: UNK, QD
     Route: 048
  11. MAXALT-MLT [Suspect]
     Active Substance: RIZATRIPTAN BENZOATE
     Indication: MIGRAINE
     Dosage: AS NEEDED
     Route: 048
     Dates: start: 200409
  12. MORPHINE [Suspect]
     Active Substance: MORPHINE
  13. COUMADIN [Concomitant]
     Active Substance: WARFARIN SODIUM
  14. METOPROLOL SUCCINATE. [Concomitant]
     Active Substance: METOPROLOL SUCCINATE
     Dosage: 25 MG, QD EXTENDED RELEASE
     Route: 048
  15. PERCOCET [Concomitant]
     Active Substance: ACETAMINOPHEN\OXYCODONE HYDROCHLORIDE
     Dosage: 1 TABLET EVERY 6 HOURS
     Route: 048
  16. BACLOFEN. [Concomitant]
     Active Substance: BACLOFEN
     Dosage: 20 MG, TID
  17. ELAVIL [Concomitant]
     Active Substance: AMITRIPTYLINE HYDROCHLORIDE
  18. DULOXETINE HYDROCHLORIDE. [Concomitant]
     Active Substance: DULOXETINE HYDROCHLORIDE
     Dosage: 60 MG, BID IN AM
     Route: 048
  19. CALCIUM (UNSPECIFIED) [Concomitant]
     Active Substance: CALCIUM
     Dosage: ONCE DAILY
  20. GABAPENTIN. [Concomitant]
     Active Substance: GABAPENTIN
     Dosage: 300 MG, ONE AM/PM AND 3 AT BEDTIME
     Route: 048

REACTIONS (8)
  - Migraine [Recovering/Resolving]
  - Arthropathy [Recovering/Resolving]
  - Arthropathy [Recovering/Resolving]
  - Pruritus [Recovered/Resolved]
  - Drug dose omission [Unknown]
  - Insomnia [Recovering/Resolving]
  - Drug ineffective [Unknown]
  - Product supply issue [Unknown]

NARRATIVE: CASE EVENT DATE: 20090705
